FAERS Safety Report 16528519 (Version 2)
Quarter: 2019Q3

REPORT INFORMATION
  Report Type: Spontaneous
  Country: JP (occurrence: JP)
  Receive Date: 20190703
  Receipt Date: 20190704
  Transmission Date: 20191004
  Serious: Yes (Death)
  Sender: FDA-Public Use
  Company Number: JP-CELGENEUS-JPN-20190609749

PATIENT
  Age: 66 Year
  Sex: Male

DRUGS (1)
  1. VIDAZA [Suspect]
     Active Substance: AZACITIDINE
     Indication: MYELODYSPLASTIC SYNDROME
     Dosage: 100 MILLIGRAM/SQ. METER
     Route: 058
     Dates: start: 2017, end: 2017

REACTIONS (4)
  - Pyrexia [Unknown]
  - Hepatic enzyme increased [Unknown]
  - Fungal infection [Fatal]
  - Erythema nodosum [Unknown]

NARRATIVE: CASE EVENT DATE: 2017
